FAERS Safety Report 7784164-8 (Version None)
Quarter: 2011Q3

REPORT INFORMATION
  Report Type: 
  Country: None (occurrence: None)
  Receive Date: 20110928
  Receipt Date: 20110914
  Transmission Date: 20111222
  Serious: Yes (Hospitalization, Other)
  Sender: FDA-Public Use
  Company Number: US-ELI_LILLY_AND_COMPANY-US201011001040

PATIENT
  Sex: Female

DRUGS (20)
  1. FOSAMAX [Concomitant]
     Indication: BONE DISORDER
  2. CARVEDILOL [Concomitant]
     Dosage: 3.125 MG, BID
  3. PRESERVISION LUTEIN EYE VITA.+MIN.SUP.SOFTG. [Concomitant]
     Dosage: UNK, QD
  4. FORTEO [Suspect]
     Dosage: 20 UG, QD
  5. CALTRATE + D [Concomitant]
     Dosage: UNK, BID
  6. FORTEO [Suspect]
     Dosage: 20 UG, QD
  7. LEVOTHYROXINE [Concomitant]
     Dosage: 112 UG, QD
  8. OMEPRAZOLE [Concomitant]
  9. CELEBREX [Concomitant]
     Dosage: 200 MG, QD
  10. BIOFLEX                            /00943602/ [Concomitant]
  11. OXYBUTYNIN [Concomitant]
     Dosage: 5 MG, QID
  12. STOOL SOFTENER [Concomitant]
  13. FORTEO [Suspect]
     Indication: OSTEOPOROSIS
     Dosage: 20 UG, DAILY (1/D)
  14. HYDROCHLOROTHIAZIDE [Concomitant]
     Dosage: 25 MG, QD
  15. LISINOPRIL [Concomitant]
     Dosage: 20 MG, QD
  16. SIMVASTATIN [Concomitant]
     Dosage: 10 MG, EACH EVENING
  17. LORTAB [Concomitant]
     Indication: PAIN
     Dosage: 7.5 MG, QID
  18. FISH OIL [Concomitant]
     Dosage: 1200 MG, QD
  19. VITAMIN D [Concomitant]
     Dosage: 2000 IU, UNK
  20. CETIRIZINE HCL [Concomitant]
     Dosage: 10 MG, EACH EVENING

REACTIONS (4)
  - TRANSIENT ISCHAEMIC ATTACK [None]
  - DEVICE BREAKAGE [None]
  - FACIAL ASYMMETRY [None]
  - SPEECH DISORDER [None]
